FAERS Safety Report 4990512-4 (Version None)
Quarter: 2006Q2

REPORT INFORMATION
  Report Type: 
  Country: None (occurrence: None)
  Receive Date: 20060427
  Receipt Date: 20051018
  Transmission Date: 20061013
  Serious: Yes (Other)
  Sender: FDA-Public Use
  Company Number: 2006047241

PATIENT
  Age: 43 Year
  Sex: Female
  Weight: 95.2554 kg

DRUGS (4)
  1. BEXTRA [Suspect]
     Indication: MYALGIA
     Dosage: 20 MG (20 MG 1 IN 1 D)
     Dates: start: 20030325, end: 20030401
  2. NEXIUM [Concomitant]
  3. PAXIL [Concomitant]
  4. MULTIVITAMIN [Concomitant]

REACTIONS (3)
  - DERMATITIS ALLERGIC [None]
  - DRUG ERUPTION [None]
  - FACE OEDEMA [None]
